FAERS Safety Report 14966789 (Version 1)
Quarter: 2018Q2

REPORT INFORMATION
  Report Type: Spontaneous
  Country: UY (occurrence: UY)
  Receive Date: 20180604
  Receipt Date: 20180604
  Transmission Date: 20180711
  Serious: No
  Sender: FDA-Public Use
  Company Number: UY-CHEPLA-1989195

PATIENT
  Age: 44 Year
  Sex: Male

DRUGS (1)
  1. XENICAL [Suspect]
     Active Substance: ORLISTAT
     Indication: PRODUCT USED FOR UNKNOWN INDICATION
     Dosage: ONE TABLET A DAY AT MID DAY
     Route: 065
     Dates: start: 2017

REACTIONS (1)
  - Urine ketone body present [Unknown]
